FAERS Safety Report 19644441 (Version 1)
Quarter: 2021Q3

REPORT INFORMATION
  Report Type: Spontaneous
  Country: CN (occurrence: CN)
  Receive Date: 20210801
  Receipt Date: 20210801
  Transmission Date: 20211014
  Serious: Yes (Hospitalization)
  Sender: FDA-Public Use
  Company Number: CN-BAXTER-2021BAX023592

PATIENT
  Age: 63 Year
  Sex: Female
  Weight: 61 kg

DRUGS (8)
  1. 0.9% SODIUM CHLORIDE INJECTION [Suspect]
     Active Substance: SODIUM CHLORIDE
     Dosage: DAY 1: MABTHERA 700 MG + 0.9% SODIUM CHLORIDE 500 ML
     Route: 041
     Dates: start: 20190427, end: 20190427
  2. MABTHERA [Suspect]
     Active Substance: RITUXIMAB
     Indication: FOLLICULAR LYMPHOMA
     Dosage: DAY 1: MABTHERA 700 MG + 0.9% SODIUM CHLORIDE 500 ML
     Route: 041
     Dates: start: 20190427, end: 20190427
  3. ENDOXAN [Suspect]
     Active Substance: CYCLOPHOSPHAMIDE
     Indication: FOLLICULAR LYMPHOMA
     Dosage: DAY 1: ENDOXAN 700 MG + 0.9% SODIUM CHLORIDE 100 ML
     Route: 041
     Dates: start: 20190427, end: 20190427
  4. 0.9% SODIUM CHLORIDE INJECTION [Suspect]
     Active Substance: SODIUM CHLORIDE
     Indication: MEDICATION DILUTION
     Dosage: DAY 1: ENDOXAN 700 MG + 0.9% SODIUM CHLORIDE 100 ML
     Route: 041
     Dates: start: 20190427, end: 20190427
  5. VINDESINE SULFATE [Suspect]
     Active Substance: VINDESINE SULFATE
     Indication: FOLLICULAR LYMPHOMA
     Dosage: DAY 1: VINDESINE SULFATE 3 MG + 0.9% SODIUM CHLORIDE 500 ML
     Route: 041
     Dates: start: 20190427, end: 20190427
  6. 0.9% SODIUM CHLORIDE INJECTION [Suspect]
     Active Substance: SODIUM CHLORIDE
     Dosage: DAY 1: VINDESINE SULFATE 3 MG + 0.9% SODIUM CHLORIDE 500 ML
     Route: 041
     Dates: start: 20190427, end: 20190427
  7. 0.9% SODIUM CHLORIDE INJECTION [Suspect]
     Active Substance: SODIUM CHLORIDE
     Dosage: DAY 1: PHARMORUBICIN 70 MG + 0.9% SODIUM CHLORIDE 500 ML
     Route: 041
     Dates: start: 20190427, end: 20190427
  8. PHARMORUBICIN [Suspect]
     Active Substance: EPIRUBICIN
     Indication: FOLLICULAR LYMPHOMA
     Dosage: PHARMORUBICIN 70 MG + 0.9% SODIUM CHLORIDE 500 ML
     Route: 041
     Dates: start: 20190427, end: 20190427

REACTIONS (1)
  - Myelosuppression [Recovered/Resolved]

NARRATIVE: CASE EVENT DATE: 20190516
